FAERS Safety Report 16975399 (Version 1)
Quarter: 2019Q4

REPORT INFORMATION
  Report Type: Spontaneous
  Country: US (occurrence: US)
  Receive Date: 20190913
  Receipt Date: 20190913
  Transmission Date: 20200122
  Serious: Yes (Hospitalization)
  Sender: FDA-Public Use
  Company Number: None

PATIENT
  Age: 5 Month
  Sex: Male

DRUGS (5)
  1. SILDENAFIL 10MG [Suspect]
     Active Substance: SILDENAFIL
     Route: 048
  2. PROPOFOL. [Suspect]
     Active Substance: PROPOFOL
  3. KEPPRA [Concomitant]
     Active Substance: LEVETIRACETAM
  4. PHENBARB [Concomitant]
  5. LOVENOX [Concomitant]
     Active Substance: ENOXAPARIN SODIUM

REACTIONS (1)
  - Catheter placement [None]

NARRATIVE: CASE EVENT DATE: 20190823
